FAERS Safety Report 13456028 (Version 2)
Quarter: 2017Q2

REPORT INFORMATION
  Report Type: Spontaneous
  Country: US (occurrence: US)
  Receive Date: 20170418
  Receipt Date: 20170508
  Transmission Date: 20170830
  Serious: No
  Sender: FDA-Public Use
  Company Number: US-009507513-1704USA003969

PATIENT
  Age: 29 Year
  Sex: Female
  Weight: 86.17 kg

DRUGS (1)
  1. NEXPLANON [Suspect]
     Active Substance: ETONOGESTREL
     Indication: CONTRACEPTION
     Dosage: 1 IMPLANT, UNK
     Route: 059
     Dates: start: 20170309, end: 20170329

REACTIONS (4)
  - Implant site erythema [Unknown]
  - Implant site infection [Unknown]
  - Application site scab [Unknown]
  - Implant site pain [Unknown]

NARRATIVE: CASE EVENT DATE: 20170313
